FAERS Safety Report 21960697 (Version 1)
Quarter: 2023Q1

REPORT INFORMATION
  Report Type: Report from Study
  Country: US (occurrence: US)
  Receive Date: 20230207
  Receipt Date: 20230207
  Transmission Date: 20230418
  Serious: Yes (Other)
  Sender: FDA-Public Use
  Company Number: US-ABBVIE-4296995

PATIENT
  Sex: Female

DRUGS (6)
  1. SYNTHROID [Suspect]
     Active Substance: LEVOTHYROXINE SODIUM
     Indication: Product used for unknown indication
     Dosage: 50 MICROGRAM
     Route: 048
     Dates: start: 2018
  2. Fluocinolone 0.01 Percent [Concomitant]
     Indication: Product used for unknown indication
     Dosage: SCALP OIL
  3. Ibandronate 150 milligram [Concomitant]
     Indication: Product used for unknown indication
  4. Estring 2 Milligram [Concomitant]
     Indication: Product used for unknown indication
     Route: 067
  5. Halobetasol Prop 0.05 percent [Concomitant]
     Indication: Product used for unknown indication
  6. SULFACETAMIDE [Concomitant]
     Active Substance: SULFACETAMIDE
     Indication: Product used for unknown indication
     Dosage: 10/5 PERCENT

REACTIONS (5)
  - Breast reconstruction [Recovering/Resolving]
  - Oophorectomy [Recovering/Resolving]
  - Malaise [Not Recovered/Not Resolved]
  - Salpingectomy [Recovering/Resolving]
  - Multiple allergies [Unknown]
